FAERS Safety Report 6599029-7 (Version None)
Quarter: 2010Q1

REPORT INFORMATION
  Report Type: 
  Country: None (occurrence: None)
  Receive Date: 20100224
  Receipt Date: 20090706
  Transmission Date: 20100710
  Serious: No
  Sender: FDA-Public Use
  Company Number: US-BRISTOL-MYERS SQUIBB COMPANY-14687982

PATIENT
  Age: 57 Year

DRUGS (6)
  1. GLUCOPHAGE [Suspect]
     Indication: BLOOD GLUCOSE INCREASED
     Dosage: 500 BID IN 2004:INCREASE TO 1000 BID IN 2005
     Route: 048
     Dates: start: 20050101
  2. MONOPRIL [Suspect]
     Indication: HYPERTENSION
  3. ARTHROTEC [Suspect]
     Indication: PAIN
     Dates: start: 20080101
  4. AMARYL [Suspect]
     Indication: BLOOD GLUCOSE
  5. JANUVIA [Suspect]
     Indication: BLOOD GLUCOSE
  6. ACTOS [Suspect]
     Indication: BLOOD GLUCOSE

REACTIONS (1)
  - ALOPECIA [None]
